FAERS Safety Report 7808972-X (Version None)
Quarter: 2011Q4

REPORT INFORMATION
  Report Type: 
  Country: None (occurrence: None)
  Receive Date: 20111012
  Receipt Date: 20111005
  Transmission Date: 20120403
  Serious: Yes (Hospitalization)
  Sender: FDA-Public Use
  Company Number: IL-BRISTOL-MYERS SQUIBB COMPANY-16092488

PATIENT
  Age: 81 Year
  Sex: Male

DRUGS (7)
  1. BLINDED: SAXAGLIPTIN [Suspect]
     Indication: TYPE 2 DIABETES MELLITUS
     Dates: start: 20101222
  2. ASPIRIN [Concomitant]
     Dosage: 1DF={100MG ON 22DEC10,22MAR11,05SEP11.
  3. PROSCAR [Suspect]
  4. REPAGLINIDE [Suspect]
     Indication: TYPE 2 DIABETES MELLITUS
     Dosage: DRUG INTERRUPTED ON 22SEP2011
     Dates: start: 20110616
  5. GLUCO-RITE [Suspect]
     Indication: DIABETES MELLITUS
  6. BLINDED: PLACEBO [Suspect]
     Indication: TYPE 2 DIABETES MELLITUS
     Dates: start: 20101222
  7. MERCAPTIZOL [Suspect]
     Dates: start: 20110825

REACTIONS (4)
  - ANAEMIA [None]
  - JAUNDICE [None]
  - TRANSFUSION REACTION [None]
  - HEPATIC FUNCTION ABNORMAL [None]
